FAERS Safety Report 5210603-2 (Version None)
Quarter: 2006Q4

REPORT INFORMATION
  Report Type: 
  Country: None (occurrence: None)
  Receive Date: 20061106
  Receipt Date: 20060928
  Transmission Date: 20070319
  Serious: No
  Sender: FDA-Public Use
  Company Number: VNL_0223_2006

PATIENT
  Age: 76 Year
  Sex: Female
  Weight: 59.8748 kg

DRUGS (6)
  1. APOKYN [Suspect]
     Indication: PARKINSON'S DISEASE
     Dosage: 0.4 ML TID SC
     Route: 058
     Dates: start: 20060811
  2. FOSAMAX [Concomitant]
  3. ZOCOR [Concomitant]
  4. CORGARD [Concomitant]
  5. LISINOPRIL [Concomitant]
  6. UNSPECIFIED MEDICATIONS FOR PARKINSON'S DISEASE [Concomitant]

REACTIONS (1)
  - SOMNOLENCE [None]
